FAERS Safety Report 9393426 (Version 1)
Quarter: 2013Q3

REPORT INFORMATION
  Report Type: Spontaneous
  Country: US (occurrence: US)
  Receive Date: 20130710
  Receipt Date: 20130710
  Transmission Date: 20140515
  Serious: Yes (Death, Other)
  Sender: FDA-Public Use
  Company Number: US-BAYER-2013-080677

PATIENT
  Age: 60 Year
  Sex: Female

DRUGS (2)
  1. GADAVIST [Suspect]
     Indication: NUCLEAR MAGNETIC RESONANCE IMAGING ABDOMINAL
     Dosage: 8.2 CC, ONCE
     Route: 042
     Dates: start: 20130628, end: 20130628
  2. GADAVIST [Suspect]
     Indication: PANCREATITIS CHRONIC

REACTIONS (5)
  - Death [Fatal]
  - General physical health deterioration [None]
  - Nausea [None]
  - Abdominal discomfort [None]
  - Incoherent [None]
